FAERS Safety Report 4504856-3 (Version None)
Quarter: 2004Q4

REPORT INFORMATION
  Report Type: 
  Country: None (occurrence: None)
  Receive Date: 20040928
  Receipt Date: 20040719
  Transmission Date: 20050328
  Serious: No
  Sender: FDA-Public Use
  Company Number: 04P-163-0267591-00

PATIENT
  Age: 52 Year
  Sex: Female
  Weight: 89.3586 kg

DRUGS (8)
  1. HUMIRA [Suspect]
     Indication: RHEUMATOID ARTHRITIS
     Dosage: 40 MG, 1 IN 2 WK, SUBCUTANEOUS
     Route: 058
     Dates: start: 20040715
  2. LEFLUNOMIDE [Concomitant]
  3. BUCINDOLOL HYDROCHLORIDE [Concomitant]
  4. LANSOPRAZOLE [Concomitant]
  5. FOLIC ACID [Concomitant]
  6. AMLODIPINE BESYLATE [Concomitant]
  7. UNIRECTIC [Concomitant]
  8. PREDNISONE [Concomitant]

REACTIONS (4)
  - ARTHRALGIA [None]
  - FATIGUE [None]
  - FEELING HOT [None]
  - FLUSHING [None]
